FAERS Safety Report 16647487 (Version 3)
Quarter: 2020Q3

REPORT INFORMATION
  Report Type: Spontaneous
  Country: US (occurrence: US)
  Receive Date: 20190730
  Receipt Date: 20200715
  Transmission Date: 20201102
  Serious: Yes (Hospitalization)
  Sender: FDA-Public Use
  Company Number: US-PFIZER INC-2019324009

PATIENT
  Age: 71 Year
  Sex: Female
  Weight: 69.4 kg

DRUGS (6)
  1. PRISTIQ EXTENDED?RELEASE [Concomitant]
     Active Substance: DESVENLAFAXINE SUCCINATE
     Dosage: 100 MG, 2X/DAY
  2. TRAZODONE [Concomitant]
     Active Substance: TRAZODONE HYDROCHLORIDE
     Dosage: 2?100 MG AT BEDTIME
  3. XALATAN [Suspect]
     Active Substance: LATANOPROST
     Indication: EYE PRURITUS
  4. XALATAN [Suspect]
     Active Substance: LATANOPROST
     Indication: DRY EYE
     Dosage: UNK
  5. GABAPENTIN. [Concomitant]
     Active Substance: GABAPENTIN
     Dosage: 600 MG, 3X A DAY
  6. CLONAZEPAM. [Concomitant]
     Active Substance: CLONAZEPAM
     Dosage: 2 MG, AT BEDTIME

REACTIONS (6)
  - Visual impairment [Unknown]
  - Product use in unapproved indication [Unknown]
  - Condition aggravated [Unknown]
  - Panic attack [Unknown]
  - Visual impairment [Recovered/Resolved]
  - Off label use [Unknown]
